FAERS Safety Report 23917345 (Version 2)
Quarter: 2024Q2

REPORT INFORMATION
  Report Type: Spontaneous
  Country: BE (occurrence: BE)
  Receive Date: 20240529
  Receipt Date: 20240610
  Transmission Date: 20240715
  Serious: Yes (Hospitalization, Other)
  Sender: FDA-Public Use
  Company Number: BE-BAYER-2024A078204

PATIENT
  Age: 47 Year
  Sex: Female
  Weight: 83 kg

DRUGS (7)
  1. XARELTO [Suspect]
     Active Substance: RIVAROXABAN
     Indication: Pulmonary embolism
     Dosage: 15 MG, BID
     Route: 048
  2. XARELTO [Suspect]
     Active Substance: RIVAROXABAN
     Indication: Deep vein thrombosis
     Dosage: 20 MG, QD
     Route: 048
  3. ETHINYL ESTRADIOL\LEVONORGESTREL [Suspect]
     Active Substance: ETHINYL ESTRADIOL\LEVONORGESTREL
     Indication: Menometrorrhagia
     Dosage: CONTINUOUS BASIS (WITHOUT PILL-FREE DAYS)
  4. DESLORATADINE [Concomitant]
     Active Substance: DESLORATADINE
  5. BECLOMETHASONE\FORMOTEROL [Concomitant]
     Active Substance: BECLOMETHASONE\FORMOTEROL
     Route: 055
  6. ENOXAPARIN [Concomitant]
     Active Substance: ENOXAPARIN
     Dosage: 80 MG, BID (1 MG/KG)
  7. IRON [Concomitant]
     Active Substance: IRON

REACTIONS (3)
  - Vaginal haemorrhage [Unknown]
  - Presyncope [Unknown]
  - Blood loss anaemia [Unknown]
